FAERS Safety Report 26129160 (Version 1)
Quarter: 2025Q4

REPORT INFORMATION
  Report Type: Spontaneous
  Country: CA (occurrence: CA)
  Receive Date: 20251208
  Receipt Date: 20251208
  Transmission Date: 20260117
  Serious: Yes (Other)
  Sender: CSL BEHRING
  Company Number: CA-BEH-2025227545

PATIENT
  Age: 58 Year
  Sex: Male

DRUGS (1)
  1. ZEMAIRA [Suspect]
     Active Substance: .ALPHA.1-PROTEINASE INHIBITOR HUMAN
     Indication: Product used for unknown indication
     Route: 065

REACTIONS (2)
  - Ascites [Not Recovered/Not Resolved]
  - Intentional dose omission [Not Recovered/Not Resolved]
